FAERS Safety Report 20633058 (Version 2)
Quarter: 2022Q2

REPORT INFORMATION
  Report Type: Spontaneous
  Country: HU (occurrence: HU)
  Receive Date: 20220324
  Receipt Date: 20220407
  Transmission Date: 20220721
  Serious: Yes (Hospitalization)
  Sender: FDA-Public Use
  Company Number: HU-TEVA-2022-HU-2018902

PATIENT
  Age: 63 Year
  Sex: Male

DRUGS (2)
  1. SUNITINIB [Interacting]
     Active Substance: SUNITINIB
     Indication: Meningioma malignant
     Route: 065
  2. AMIODARONE [Interacting]
     Active Substance: AMIODARONE
     Indication: Atrial fibrillation
     Route: 065

REACTIONS (2)
  - Autoimmune thyroiditis [Recovering/Resolving]
  - Drug interaction [Unknown]
